FAERS Safety Report 14879495 (Version 2)
Quarter: 2018Q2

REPORT INFORMATION
  Report Type: Spontaneous
  Country: US (occurrence: US)
  Receive Date: 20180511
  Receipt Date: 20180530
  Transmission Date: 20180711
  Serious: No
  Sender: FDA-Public Use
  Company Number: US-PFIZER INC-2018193291

PATIENT
  Age: 6 Year
  Sex: Female

DRUGS (3)
  1. KENALOG [Concomitant]
     Active Substance: TRIAMCINOLONE ACETONIDE
     Indication: ECZEMA
     Dosage: UNK
     Dates: start: 20180403
  2. EUCRISA [Suspect]
     Active Substance: CRISABOROLE
     Indication: DERMATITIS ATOPIC
     Dosage: UNK, 2X/DAY (1 APPLICATION TOPICALLY 2 TIMES DAILY)
     Route: 061
  3. EUCRISA [Suspect]
     Active Substance: CRISABOROLE
     Indication: ECZEMA

REACTIONS (1)
  - Burning sensation [Recovered/Resolved]
